FAERS Safety Report 9542012 (Version 7)
Quarter: 2013Q4

REPORT INFORMATION
  Report Type: Report from Study
  Country: SG (occurrence: SG)
  Receive Date: 20130923
  Receipt Date: 20131112
  Transmission Date: 20140711
  Serious: Yes (Life-Threatening, Other)
  Sender: FDA-Public Use
  Company Number: SG-MILLENNIUM PHARMACEUTICALS, INC.-2013JNJ000357

PATIENT
  Sex: 0

DRUGS (3)
  1. VELCADE [Suspect]
     Indication: LYMPHOMA
     Dosage: 2 MG, UNK
     Route: 042
     Dates: start: 20130703, end: 20130905
  2. VELCADE [Suspect]
     Dosage: 2.1 MG, UNK
     Route: 042
     Dates: start: 20130924, end: 20130927
  3. VELCADE [Suspect]
     Dosage: UNK
     Route: 042
     Dates: start: 20131014, end: 20131017

REACTIONS (2)
  - Thrombocytopenia [Not Recovered/Not Resolved]
  - Thrombocytopenia [Recovering/Resolving]
